FAERS Safety Report 18314655 (Version 1)
Quarter: 2020Q3

REPORT INFORMATION
  Report Type: Other
  Country: CA (occurrence: CA)
  Receive Date: 20200926
  Receipt Date: 20200926
  Transmission Date: 20201103
  Serious: Yes (Other)
  Sender: FDA-Public Use
  Company Number: CA-CELLTRION INC.-2020CA026368

PATIENT

DRUGS (2)
  1. RITUXIMAB (UNKNOWN) [Suspect]
     Active Substance: RITUXIMAB
     Indication: PULMONARY VASCULITIS
     Dosage: UNK
     Route: 065
  2. AZATHIOPRINE. [Suspect]
     Active Substance: AZATHIOPRINE
     Indication: PULMONARY VASCULITIS
     Dosage: UNK
     Route: 065

REACTIONS (5)
  - Ataxia [Unknown]
  - Encephalitis enteroviral [Unknown]
  - Encephalomyelitis [Unknown]
  - Product use issue [Unknown]
  - Mutism [Unknown]
